FAERS Safety Report 7514731-8 (Version None)
Quarter: 2011Q2

REPORT INFORMATION
  Report Type: 
  Country: None (occurrence: None)
  Receive Date: 20110526
  Receipt Date: 20110526
  Transmission Date: 20111010
  Serious: Yes (Death)
  Sender: FDA-Public Use
  Company Number: None

PATIENT
  Sex: Male
  Weight: 106.5953 kg

DRUGS (2)
  1. FLUTICASONE PROPIONATE [Suspect]
     Indication: NASAL CONGESTION
     Dosage: 2 SPRAYS TWICE DAILY
     Route: 055
     Dates: start: 20091201
  2. FLUTICASONE PROPIONATE [Suspect]
     Indication: NASAL CONGESTION
     Dosage: 2 SPRAYS TWICE DAILY
     Route: 055
     Dates: start: 20110101

REACTIONS (2)
  - COMPLETED SUICIDE [None]
  - DEPRESSION [None]
